FAERS Safety Report 25092323 (Version 1)
Quarter: 2025Q1

REPORT INFORMATION
  Report Type: Spontaneous
  Country: US (occurrence: US)
  Receive Date: 20250319
  Receipt Date: 20250319
  Transmission Date: 20250408
  Serious: Yes (Other)
  Sender: SANDOZ
  Company Number: US-SANDOZ-SDZ2025US016034

PATIENT
  Age: 70 Year
  Sex: Female

DRUGS (7)
  1. AZITHROMYCIN [Suspect]
     Active Substance: AZITHROMYCIN
     Dosage: UNK, QD
     Route: 065
     Dates: start: 202308
  2. AZITHROMYCIN [Suspect]
     Active Substance: AZITHROMYCIN
     Indication: Product used for unknown indication
     Route: 065
     Dates: start: 2015, end: 2017
  3. RIFAMPIN [Suspect]
     Active Substance: RIFAMPIN
     Dosage: UNK UNK, QD
     Route: 065
     Dates: start: 202308
  4. RIFAMPIN [Suspect]
     Active Substance: RIFAMPIN
     Indication: Product used for unknown indication
     Route: 065
     Dates: start: 2015, end: 2017
  5. AMIKACIN [Concomitant]
     Active Substance: AMIKACIN
     Indication: Product used for unknown indication
     Dosage: UNK, TIW
     Route: 042
     Dates: start: 202308, end: 202310
  6. ETHAMBUTOL [Concomitant]
     Active Substance: ETHAMBUTOL HYDROCHLORIDE
     Dosage: UNK, QD
     Route: 065
     Dates: start: 202308
  7. ETHAMBUTOL [Concomitant]
     Active Substance: ETHAMBUTOL HYDROCHLORIDE
     Indication: Product used for unknown indication
     Route: 065
     Dates: start: 2015, end: 2017

REACTIONS (4)
  - Pulmonary cavitation [Unknown]
  - Condition aggravated [Unknown]
  - Weight decreased [Unknown]
  - Fatigue [Unknown]
